FAERS Safety Report 5303160-3 (Version None)
Quarter: 2007Q2

REPORT INFORMATION
  Report Type: 
  Country: None (occurrence: None)
  Receive Date: 20070420
  Receipt Date: 20070411
  Transmission Date: 20071010
  Serious: Yes (Other)
  Sender: FDA-Public Use
  Company Number: US-GENENTECH-240053

PATIENT
  Age: 69 Year
  Sex: Female

DRUGS (1)
  1. AVASTIN [Suspect]
     Indication: CHOROIDAL NEOVASCULARISATION
     Route: 031
     Dates: start: 20050906

REACTIONS (1)
  - RETINAL DETACHMENT [None]
